FAERS Safety Report 18028329 (Version 1)
Quarter: 2020Q3

REPORT INFORMATION
  Report Type: Spontaneous
  Country: US (occurrence: US)
  Receive Date: 20200716
  Receipt Date: 20200716
  Transmission Date: 20201103
  Serious: No
  Sender: FDA-Public Use
  Company Number: US-CADILA HEALTHCARE LIMITED-US-ZYDUS-050699

PATIENT
  Sex: Female

DRUGS (1)
  1. METOPROLOL TABLET EXTENDED RELEASE [Suspect]
     Active Substance: METOPROLOL

REACTIONS (1)
  - Arrhythmia [Unknown]
